FAERS Safety Report 14053543 (Version 1)
Quarter: 2017Q4

REPORT INFORMATION
  Report Type: Spontaneous
  Country: US (occurrence: US)
  Receive Date: 20171006
  Receipt Date: 20171006
  Transmission Date: 20180321
  Serious: No
  Sender: FDA-Public Use
  Company Number: US-JNJFOC-20170820493

PATIENT
  Age: 6 Month
  Sex: Female

DRUGS (1)
  1. NORETHINDRONE AND ETHINYL ESTRADIOL [Suspect]
     Active Substance: ETHINYL ESTRADIOL\NORETHINDRONE
     Indication: PRODUCT USED FOR UNKNOWN INDICATION
     Route: 063
     Dates: start: 201704

REACTIONS (5)
  - Exposure during breast feeding [Unknown]
  - Diarrhoea [Unknown]
  - Urticaria [Unknown]
  - Haematochezia [Unknown]
  - Rash [Unknown]

NARRATIVE: CASE EVENT DATE: 201704
